FAERS Safety Report 13935533 (Version 1)
Quarter: 2017Q3

REPORT INFORMATION
  Report Type: Spontaneous
  Country: IT (occurrence: IT)
  Receive Date: 20170905
  Receipt Date: 20170905
  Transmission Date: 20171127
  Serious: Yes (Hospitalization, Other)
  Sender: FDA-Public Use
  Company Number: IT-BAYER-2017-161719

PATIENT
  Age: 58 Year
  Sex: Male

DRUGS (8)
  1. TACE [Concomitant]
     Active Substance: CHLOROTRIANISENE
  2. SORAFENIB (RAF KINASE INHIBITOR) [Suspect]
     Active Substance: SORAFENIB
     Indication: HEPATOCELLULAR CARCINOMA
     Dosage: UNK
     Dates: start: 20081211
  3. SORAFENIB (RAF KINASE INHIBITOR) [Suspect]
     Active Substance: SORAFENIB
     Indication: HEPATOCELLULAR CARCINOMA
     Dosage: 400 MG QD
     Dates: start: 200903
  4. SORAFENIB (RAF KINASE INHIBITOR) [Suspect]
     Active Substance: SORAFENIB
     Indication: HEPATOCELLULAR CARCINOMA
     Dosage: 400 MG, QD
  5. ANTICOAGULANT CIT PHOS DEX ADENINE [Concomitant]
     Active Substance: CITRIC ACID MONOHYDRATE\DEXTROSE\SODIUM CITRATE\SODIUM PHOSPHATE, MONOBASIC
  6. ANTIFUNGAL [Concomitant]
     Active Substance: UNSPECIFIED INGREDIENT
  7. SORAFENIB (RAF KINASE INHIBITOR) [Suspect]
     Active Substance: SORAFENIB
     Indication: HEPATOCELLULAR CARCINOMA
     Dosage: DAILY DOSE 400 MG
  8. SORAFENIB (RAF KINASE INHIBITOR) [Suspect]
     Active Substance: SORAFENIB
     Indication: HEPATOCELLULAR CARCINOMA
     Dosage: 400 MG DAILY (DOSE REDUCED)
     Route: 048

REACTIONS (17)
  - Stomatitis [Recovered/Resolved]
  - Pulmonary embolism [None]
  - Oesophageal haemorrhage [None]
  - Hepatic neoplasm [None]
  - Weight decreased [Recovered/Resolved]
  - Palmar-plantar erythrodysaesthesia syndrome [Recovered/Resolved]
  - Portal hypertension [None]
  - Glossitis [Recovered/Resolved]
  - Body temperature increased [Recovered/Resolved]
  - Anaemia [None]
  - Alanine aminotransferase increased [None]
  - Aspartate aminotransferase increased [None]
  - Pulmonary cavitation [None]
  - Pulmonary infarction [None]
  - Gamma-glutamyltransferase increased [None]
  - Chest pain [None]
  - Platelet count decreased [None]

NARRATIVE: CASE EVENT DATE: 200812
